FAERS Safety Report 11121635 (Version 1)
Quarter: 2015Q2

REPORT INFORMATION
  Report Type: Spontaneous
  Country: US (occurrence: None)
  Receive Date: 20150518
  Receipt Date: 20150518
  Transmission Date: 20150821
  Serious: No
  Sender: FDA-Public Use
  Company Number: None

PATIENT
  Age: 72 Year
  Sex: Female

DRUGS (1)
  1. CAPECITABINE 500MG TABS [Suspect]
     Active Substance: CAPECITABINE
     Indication: COLON CANCER
     Dosage: 3QAM 14 DAYS, 2QAM ON 7 OFF
     Route: 048
     Dates: start: 201409

REACTIONS (4)
  - Erythema [None]
  - Blister [None]
  - Peripheral swelling [None]
  - Rash [None]

NARRATIVE: CASE EVENT DATE: 201504
